FAERS Safety Report 17768706 (Version 6)
Quarter: 2023Q4

REPORT INFORMATION
  Report Type: Report from Study
  Country: US (occurrence: None)
  Receive Date: 20200512
  Receipt Date: 20231013
  Transmission Date: 20240109
  Serious: Yes (Hospitalization, Other)
  Sender: FDA-Public Use
  Company Number: US-ROCHE-2550922

PATIENT
  Age: 51 Year
  Sex: Female
  Weight: 78.5 kg

DRUGS (30)
  1. OBINUTUZUMAB [Suspect]
     Active Substance: OBINUTUZUMAB
     Indication: Follicular lymphoma
     Dosage: ON  25/SEP/2019, 04/AUG/2020, SHE RECEIVED LAST DOSE OF INTRAVENOUS OBINUTUZUMAB PRIOR TO THE ONSET
     Route: 042
     Dates: start: 20190830
  2. OBINUTUZUMAB [Suspect]
     Active Substance: OBINUTUZUMAB
     Indication: Follicular lymphoma
  3. UMBRALISIB [Suspect]
     Active Substance: UMBRALISIB
     Indication: Follicular lymphoma
     Dosage: ON  25/SEP/2019, 01/SEP/2020, SHE RECEIVED LAST DOSE OF ORAL  TGR 1202 PRIOR TO THE ONSET OF SERIOUS
     Route: 048
     Dates: start: 20190830
  4. UMBRALISIB [Suspect]
     Active Substance: UMBRALISIB
     Indication: Follicular lymphoma
  5. FLAGYL [Concomitant]
     Active Substance: METRONIDAZOLE\METRONIDAZOLE HYDROCHLORIDE
  6. DOXYCYCLINE [Concomitant]
     Active Substance: DOXYCYCLINE
     Dosage: FOR 5 DAYS.
  7. PREDNISONE [Concomitant]
     Active Substance: PREDNISONE
  8. ZITHROMAX [Concomitant]
     Active Substance: AZITHROMYCIN DIHYDRATE
     Dosage: FOR 5 DAYS
  9. FLUCONAZOLE [Concomitant]
     Active Substance: FLUCONAZOLE
  10. CEFPODOXIME [Concomitant]
     Active Substance: CEFPODOXIME
  11. ALBUTEROL SULFATE [Concomitant]
     Active Substance: ALBUTEROL SULFATE
  12. ATORVASTATIN [Concomitant]
     Active Substance: ATORVASTATIN
  13. CETIRIZINE [Concomitant]
     Active Substance: CETIRIZINE HYDROCHLORIDE
  14. VARENICLINE [Concomitant]
     Active Substance: VARENICLINE
  15. DICLOFENAC [Concomitant]
     Active Substance: DICLOFENAC
  16. FLUTICASONE [Concomitant]
     Active Substance: FLUTICASONE
  17. GABAPENTIN [Concomitant]
     Active Substance: GABAPENTIN
  18. GLIMEPIRIDE [Concomitant]
     Active Substance: GLIMEPIRIDE
  19. GLYCOPYRROLATE [Concomitant]
     Active Substance: GLYCOPYRROLATE
  20. ACETAMINOPHEN\HYDROCODONE [Concomitant]
     Active Substance: ACETAMINOPHEN\HYDROCODONE
  21. IPRATROPIUM [Concomitant]
     Active Substance: IPRATROPIUM
  22. LISINOPRIL [Concomitant]
     Active Substance: LISINOPRIL
  23. MONTELUKAST [Concomitant]
     Active Substance: MONTELUKAST SODIUM
  24. NAPROXEN [Concomitant]
     Active Substance: NAPROXEN
  25. OMEPRAZOLE [Concomitant]
     Active Substance: OMEPRAZOLE
  26. ONDANSETRON [Concomitant]
     Active Substance: ONDANSETRON
  27. SUCRALFATE [Concomitant]
     Active Substance: SUCRALFATE
  28. TERBINAFINE [Concomitant]
     Active Substance: TERBINAFINE
  29. TIZANIDINE [Concomitant]
     Active Substance: TIZANIDINE
  30. RITUXIMAB [Concomitant]
     Active Substance: RITUXIMAB
     Route: 065

REACTIONS (7)
  - Diarrhoea [Recovered/Resolved]
  - Enterocolitis infectious [Recovering/Resolving]
  - Dyspnoea [Recovered/Resolved]
  - Hypoxia [Recovered/Resolved]
  - Pneumonia [Recovered/Resolved]
  - Muscular weakness [Not Recovered/Not Resolved]
  - Pain in extremity [Not Recovered/Not Resolved]

NARRATIVE: CASE EVENT DATE: 20191018
